FAERS Safety Report 23936473 (Version 2)
Quarter: 2024Q2

REPORT INFORMATION
  Report Type: Spontaneous
  Country: US (occurrence: US)
  Receive Date: 20240604
  Receipt Date: 20240610
  Transmission Date: 20240716
  Serious: Yes (Life-Threatening, Hospitalization)
  Sender: FDA-Public Use
  Company Number: US-PFIZER INC-PV202400071810

PATIENT
  Age: 3 Year
  Sex: Female
  Weight: 16 kg

DRUGS (2)
  1. DOXYCYCLINE HYCLATE [Suspect]
     Active Substance: DOXYCYCLINE HYCLATE
     Indication: Lymphatic malformation
     Dosage: 2100 MG, (THE TOTAL DOSE 2,100 MG, USING A CONC OF 10 MG/ML ON DAY 1 FOR A DWELL TIME OF 4 H)
  2. DOXYCYCLINE HYCLATE [Suspect]
     Active Substance: DOXYCYCLINE HYCLATE
     Dosage: 2000 MG, DIVIDED INTO THE 6 CATHETERS WITH A 4-H DWELL TIME ON DAY 2

REACTIONS (4)
  - Haematemesis [Recovered/Resolved]
  - Metabolic acidosis [Recovered/Resolved]
  - Hypotension [Recovered/Resolved]
  - Tachycardia [Recovered/Resolved]

NARRATIVE: CASE EVENT DATE: 20210101
